FAERS Safety Report 14905734 (Version 1)
Quarter: 2018Q2

REPORT INFORMATION
  Report Type: Spontaneous
  Country: US (occurrence: US)
  Receive Date: 20180517
  Receipt Date: 20180517
  Transmission Date: 20180711
  Serious: No
  Sender: FDA-Public Use
  Company Number: US-SA-2018SA009158

PATIENT
  Sex: Female
  Weight: 72.57 kg

DRUGS (4)
  1. LANTUS SOLOSTAR [Suspect]
     Active Substance: INSULIN GLARGINE
     Indication: DIABETES MELLITUS
     Dosage: DOSE:20 UNIT(S)
     Route: 051
  2. SOLOSTAR [Suspect]
     Active Substance: DEVICE
     Indication: DIABETES MELLITUS
  3. HUMALOG [Concomitant]
     Active Substance: INSULIN LISPRO
  4. OLMESARTAN [Concomitant]
     Active Substance: OLMESARTAN
     Indication: HYPERTENSION
     Route: 065

REACTIONS (8)
  - Blood glucose increased [Unknown]
  - Joint swelling [Unknown]
  - Visual impairment [Unknown]
  - Arthralgia [Unknown]
  - Asthenia [Unknown]
  - Eye swelling [Unknown]
  - Oedema peripheral [Unknown]
  - Cataract [Unknown]

NARRATIVE: CASE EVENT DATE: 201712
